FAERS Safety Report 22367233 (Version 1)
Quarter: 2023Q2

REPORT INFORMATION
  Report Type: Report from Study
  Country: CN (occurrence: CN)
  Receive Date: 20230525
  Receipt Date: 20230525
  Transmission Date: 20230721
  Serious: Yes (Hospitalization)
  Sender: FDA-Public Use
  Company Number: CN-PFIZER INC-PV202300087959

PATIENT
  Age: 42 Year
  Sex: Male
  Weight: 66 kg

DRUGS (4)
  1. EPIRUBICIN HYDROCHLORIDE [Suspect]
     Active Substance: EPIRUBICIN HYDROCHLORIDE
     Indication: Hepatic cancer
     Dosage: UNK
     Dates: start: 20220819
  2. CAMRELIZUMAB [Suspect]
     Active Substance: CAMRELIZUMAB
     Indication: Hepatic cancer
     Dosage: 200 MG, EVERY 3 WEEKS, INTRAVENOUS INFUSION
     Route: 042
     Dates: start: 20220823
  3. APATINIB [Suspect]
     Active Substance: APATINIB
     Indication: Hepatic cancer
     Dosage: 250 MG, 1X/DAY
     Route: 048
     Dates: start: 20220823
  4. ENTECAVIR [Concomitant]
     Active Substance: ENTECAVIR
     Indication: Hepatic cirrhosis
     Dosage: 0.5 MG, 1X/DAY
     Route: 048
     Dates: start: 2020

REACTIONS (1)
  - Ascites [Recovering/Resolving]

NARRATIVE: CASE EVENT DATE: 20230508
